FAERS Safety Report 7532218-3 (Version None)
Quarter: 2011Q2

REPORT INFORMATION
  Report Type: 
  Country: None (occurrence: None)
  Receive Date: 20110608
  Receipt Date: 20110606
  Transmission Date: 20111010
  Serious: Yes (Other)
  Sender: FDA-Public Use
  Company Number: JP-PFIZER INC-2011122548

PATIENT
  Age: 54 Year
  Sex: Female

DRUGS (5)
  1. BOUFUUTSUUSHOUSAN [Suspect]
     Dosage: UNK
     Dates: start: 20101228
  2. MUCOSOLVAN [Concomitant]
     Dosage: UNK
     Dates: start: 20110222
  3. CRESTOR [Suspect]
     Dosage: UNK
     Route: 048
     Dates: start: 20101228, end: 20110524
  4. VARENICLINE TARTRATE [Suspect]
     Dosage: UNK
     Route: 048
     Dates: start: 20110331, end: 20110524
  5. IRZAIM [Concomitant]
     Dosage: UNK
     Dates: start: 20110222

REACTIONS (1)
  - HEPATITIS ACUTE [None]
